FAERS Safety Report 5416444-5 (Version None)
Quarter: 2007Q3

REPORT INFORMATION
  Report Type: 
  Country: None (occurrence: None)
  Receive Date: 20070813
  Receipt Date: 20070813
  Transmission Date: 20080115
  Serious: Yes (Hospitalization)
  Sender: FDA-Public Use
  Company Number: None

PATIENT
  Age: 65 Year
  Sex: Female

DRUGS (8)
  1. UNASYN [Suspect]
     Indication: ANAPHYLACTIC REACTION
     Dosage: 1.5G Q6 IV
     Route: 042
     Dates: start: 20060707, end: 20060709
  2. UNASYN [Suspect]
     Indication: APPENDICECTOMY
     Dosage: 1.5G Q6 IV
     Route: 042
     Dates: start: 20060707, end: 20060709
  3. UNASYN [Suspect]
     Indication: POSTOPERATIVE CARE
     Dosage: 1.5G Q6 IV
     Route: 042
     Dates: start: 20060707, end: 20060709
  4. TYLENOL [Concomitant]
  5. PERCOCET [Concomitant]
  6. MORPHINE [Concomitant]
  7. LISINOPRIL [Concomitant]
  8. ZOFRAN [Concomitant]

REACTIONS (7)
  - APPENDICITIS PERFORATED [None]
  - CHOLESTASIS [None]
  - HYPERBILIRUBINAEMIA [None]
  - JAUNDICE [None]
  - LIVER FUNCTION TEST ABNORMAL [None]
  - SEPSIS [None]
  - TRANSAMINASES INCREASED [None]
